FAERS Safety Report 5801932-X (Version None)
Quarter: 2008Q3

REPORT INFORMATION
  Report Type: 
  Country: None (occurrence: None)
  Receive Date: 20080707
  Receipt Date: 20080630
  Transmission Date: 20090109
  Serious: Yes (Other)
  Sender: FDA-Public Use
  Company Number: GB-ROCHE-573229

PATIENT
  Age: 57 Year
  Sex: Female

DRUGS (1)
  1. NAPROXEN [Suspect]
     Indication: ABDOMINAL PAIN
     Dosage: TOTAL
     Route: 048

REACTIONS (4)
  - CHROMATURIA [None]
  - JAUNDICE [None]
  - OCULAR ICTERUS [None]
  - PRURITUS GENERALISED [None]
